FAERS Safety Report 4581964-2 (Version None)
Quarter: 2005Q1

REPORT INFORMATION
  Report Type: 
  Country: None (occurrence: None)
  Receive Date: 20050214
  Receipt Date: 20050204
  Transmission Date: 20050727
  Serious: Yes (Death)
  Sender: FDA-Public Use
  Company Number: GB-ABBOTT-05P-167-0289814-00

PATIENT
  Sex: Female

DRUGS (1)
  1. EPILIM LIQUID [Suspect]
     Indication: EPILEPSY

REACTIONS (2)
  - AGGRESSION [None]
  - EPILEPSY [None]
